FAERS Safety Report 9144463 (Version 1)
Quarter: 2013Q1

REPORT INFORMATION
  Report Type: Spontaneous
  Country: DE (occurrence: DE)
  Receive Date: 20130306
  Receipt Date: 20130306
  Transmission Date: 20140127
  Serious: Yes (Death, Congenital Anomaly)
  Sender: FDA-Public Use
  Company Number: DE-TEVA-387741GER

PATIENT
  Sex: Female
  Weight: 3.14 kg

DRUGS (2)
  1. VENLAFAXINE [Suspect]
     Route: 064
  2. FOLS?URE [Concomitant]
     Route: 064

REACTIONS (2)
  - Coarctation of the aorta [Fatal]
  - Foetal death [Fatal]
